FAERS Safety Report 13550179 (Version 2)
Quarter: 2017Q2

REPORT INFORMATION
  Report Type: Report from Study
  Country: CN (occurrence: CN)
  Receive Date: 20170516
  Receipt Date: 20170530
  Transmission Date: 20170830
  Serious: Yes (Other)
  Sender: FDA-Public Use
  Company Number: CN-ROCHE-1935967

PATIENT

DRUGS (5)
  1. ENOXAPARIN [Concomitant]
     Active Substance: ENOXAPARIN
  2. ALTEPLASE [Suspect]
     Active Substance: ALTEPLASE
     Indication: CEREBRAL INFARCTION
     Dosage: 10% OF TOTAL DOSE THROUGH INTRAVENOUS VEIN PUSHING
     Route: 040
  3. ALTEPLASE [Suspect]
     Active Substance: ALTEPLASE
     Dosage: THE REST 90% THROUGH INTRAVENOUS DRIP IN 1 HOUR
     Route: 041
  4. ASPIRIN. [Concomitant]
     Active Substance: ASPIRIN
  5. CLOPIDOGREL [Concomitant]
     Active Substance: CLOPIDOGREL BISULFATE

REACTIONS (1)
  - Gastrointestinal haemorrhage [Unknown]
